FAERS Safety Report 11864460 (Version 1)
Quarter: 2015Q4

REPORT INFORMATION
  Report Type: Spontaneous
  Country: US (occurrence: None)
  Receive Date: 20151223
  Receipt Date: 20151223
  Transmission Date: 20160305
  Serious: Yes (Hospitalization)
  Sender: FDA-Public Use
  Company Number: None

PATIENT
  Age: 66 Year
  Sex: Male
  Weight: 77.3 kg

DRUGS (1)
  1. NITROFURANTOIN. [Suspect]
     Active Substance: NITROFURANTOIN
     Route: 048
     Dates: start: 20150810, end: 20150823

REACTIONS (7)
  - Pleuritic pain [None]
  - Nausea [None]
  - Vomiting [None]
  - Tachycardia [None]
  - Pneumonia [None]
  - Malaise [None]
  - Dyspnoea [None]

NARRATIVE: CASE EVENT DATE: 20150822
